FAERS Safety Report 4842925-9 (Version None)
Quarter: 2005Q4

REPORT INFORMATION
  Report Type: 
  Country: None (occurrence: None)
  Receive Date: 20051129
  Receipt Date: 20051116
  Transmission Date: 20060501
  Serious: Yes (Death)
  Sender: FDA-Public Use
  Company Number: 2005135573

PATIENT
  Age: 77 Year
  Sex: Male
  Weight: 51.7 kg

DRUGS (3)
  1. VFEND [Suspect]
     Indication: BRONCHOPULMONARY ASPERGILLOSIS
     Dosage: 360 MG BID INTRAVENOUS
     Route: 042
     Dates: start: 20050823, end: 20050827
  2. VFEND [Suspect]
     Indication: BRONCHOPULMONARY ASPERGILLOSIS
     Dosage: 200 MG BID ORAL
     Route: 048
     Dates: start: 20050901, end: 20050929
  3. PRODIF (FOSFLUCONAZOLE) [Suspect]

REACTIONS (8)
  - ANGINA PECTORIS [None]
  - CARDIAC DISORDER [None]
  - CARDIO-RESPIRATORY ARREST [None]
  - CHEST PAIN [None]
  - HEADACHE [None]
  - MYOCARDIAL INFARCTION [None]
  - RASH [None]
  - SUDDEN DEATH [None]
